FAERS Safety Report 4921354-3 (Version None)
Quarter: 2006Q1

REPORT INFORMATION
  Report Type: 
  Country: None (occurrence: None)
  Receive Date: 20060222
  Receipt Date: 20060222
  Transmission Date: 20060701
  Serious: Yes (Hospitalization)
  Sender: FDA-Public Use
  Company Number: None

PATIENT
  Age: 65 Year
  Sex: Female

DRUGS (3)
  1. CALCIUM CARBONATE TABLET (CALCIUM CARBONATE) [Suspect]
     Indication: MINERAL SUPPLEMENTATION
     Dosage: 300 MG/ FOUR TIMES PER DAY / ORAL
     Route: 048
     Dates: start: 19970101
  2. TRIAMTERENE AND HYDROCHLOROTHIAZIDE [Concomitant]
  3. STOOL SOFTENER [Concomitant]

REACTIONS (5)
  - CALCINOSIS [None]
  - CONSTIPATION [None]
  - GASTROINTESTINAL DISORDER [None]
  - INTESTINAL PROLAPSE [None]
  - VAGINAL PROLAPSE [None]
